FAERS Safety Report 23516498 (Version 2)
Quarter: 2024Q1

REPORT INFORMATION
  Report Type: Spontaneous
  Country: JP (occurrence: JP)
  Receive Date: 20240213
  Receipt Date: 20240303
  Transmission Date: 20240410
  Serious: Yes (Other)
  Sender: FDA-Public Use
  Company Number: JP-SAKK-2023SA262411AA

PATIENT
  Age: 51 Year
  Sex: Female

DRUGS (3)
  1. TAXOTERE [Suspect]
     Active Substance: DOCETAXEL
     Indication: Oesophageal squamous cell carcinoma stage III
     Dosage: 60 MG/M2
     Route: 041
  2. CISPLATIN [Concomitant]
     Active Substance: CISPLATIN
     Indication: Oesophageal squamous cell carcinoma stage III
     Dosage: 70 MG/M2
     Route: 065
  3. FLUOROURACIL [Concomitant]
     Active Substance: FLUOROURACIL
     Indication: Oesophageal squamous cell carcinoma stage III
     Dosage: 480 MG/M2
     Route: 065

REACTIONS (3)
  - Tumour perforation [Unknown]
  - Pyrexia [Unknown]
  - Back pain [Unknown]
